FAERS Safety Report 5819492-6 (Version None)
Quarter: 2008Q3

REPORT INFORMATION
  Report Type: 
  Country: None (occurrence: None)
  Receive Date: 20080718
  Receipt Date: 20080708
  Transmission Date: 20090109
  Serious: No
  Sender: FDA-Public Use
  Company Number: 002067

PATIENT
  Age: 6 Month
  Sex: Male

DRUGS (8)
  1. BUSULFEX [Suspect]
     Indication: STEM CELL TRANSPLANT
     Dosage: 1.88 ML INTRAVENOUS; 2.12 ML, DAILY DOSE; INTRAVENOUS
     Route: 042
     Dates: start: 20080320, end: 20080321
  2. BUSULFEX [Suspect]
     Indication: STEM CELL TRANSPLANT
     Dosage: 1.88 ML INTRAVENOUS; 2.12 ML, DAILY DOSE; INTRAVENOUS
     Route: 042
     Dates: start: 20080322, end: 20080323
  3. CYCLOPHOSPHAMIDE [Concomitant]
  4. VALPROATE SODIUM [Concomitant]
  5. ATG (ANTILYMPHOCYTE IMMUNOGLOBULIN (HORSE)) [Concomitant]
  6. FILGRASTIM (FILGRASTIM) [Concomitant]
  7. TACROLIMUS [Concomitant]
  8. MYCOPHENOLATE MOFETIL [Concomitant]

REACTIONS (4)
  - CARDIAC FAILURE [None]
  - CYTOMEGALOVIRUS CHORIORETINITIS [None]
  - CYTOMEGALOVIRUS VIRAEMIA [None]
  - HYPERTROPHIC CARDIOMYOPATHY [None]
